FAERS Safety Report 9932863 (Version 2)
Quarter: 2014Q1

REPORT INFORMATION
  Report Type: Spontaneous
  Country: US (occurrence: US)
  Receive Date: 20140228
  Receipt Date: 20140228
  Transmission Date: 20141002
  Serious: No
  Sender: FDA-Public Use
  Company Number: US-ABBVIE-13P-163-1054091-00

PATIENT
  Age: 54 Year
  Sex: Female

DRUGS (11)
  1. ANDROGEL [Suspect]
     Indication: EXPOSURE VIA PARTNER
  2. ARMOUR THYROID [Concomitant]
     Indication: PRODUCT USED FOR UNKNOWN INDICATION
     Dates: start: 20130208
  3. ARMOUR THYROID [Concomitant]
  4. ARMOUR THYROID [Concomitant]
  5. WELLBUTRIN XL [Concomitant]
     Indication: PRODUCT USED FOR UNKNOWN INDICATION
     Route: 048
     Dates: start: 20130130
  6. AVAPRO [Concomitant]
     Indication: PRODUCT USED FOR UNKNOWN INDICATION
     Route: 048
     Dates: start: 20120625
  7. XANAX [Concomitant]
     Indication: ANXIETY
     Dosage: AS NEEDED
     Route: 048
     Dates: start: 20121207
  8. PROGESTERONE [Concomitant]
     Indication: PRODUCT USED FOR UNKNOWN INDICATION
  9. ESTROVEN [Concomitant]
     Indication: PRODUCT USED FOR UNKNOWN INDICATION
     Route: 048
  10. SINGULAIR [Concomitant]
     Indication: PRODUCT USED FOR UNKNOWN INDICATION
     Route: 048
     Dates: start: 20101105
  11. WELLBUTRIN [Concomitant]
     Indication: PRODUCT USED FOR UNKNOWN INDICATION
     Route: 048
     Dates: start: 20121207

REACTIONS (16)
  - Hair growth abnormal [Unknown]
  - Blood thyroid stimulating hormone abnormal [Not Recovered/Not Resolved]
  - Blood thyroid stimulating hormone decreased [Unknown]
  - Anxiety [Recovered/Resolved]
  - Agitation [Recovered/Resolved]
  - Hair growth abnormal [Recovered/Resolved]
  - Blood parathyroid hormone decreased [Recovered/Resolved]
  - Blood thyroid stimulating hormone increased [Unknown]
  - Skin discolouration [Recovered/Resolved]
  - Skin warm [Recovered/Resolved]
  - Secondary transmission [Recovered/Resolved]
  - Acne [Unknown]
  - Acne [Recovered/Resolved]
  - Nervousness [Recovered/Resolved]
  - Anger [Recovered/Resolved]
  - Muscle hypertrophy [Unknown]
